FAERS Safety Report 9791224 (Version 1)
Quarter: 2014Q1

REPORT INFORMATION
  Report Type: Report from Study
  Country: US (occurrence: US)
  Receive Date: 20140101
  Receipt Date: 20140101
  Transmission Date: 20141002
  Serious: Yes (Hospitalization, Other)
  Sender: FDA-Public Use
  Company Number: US-ROCHE-1313395

PATIENT
  Age: 87 Year
  Sex: Female

DRUGS (15)
  1. LUCENTIS [Suspect]
     Indication: AGE-RELATED MACULAR DEGENERATION
     Dosage: 0.05 CC LEFT EYE
     Route: 050
     Dates: start: 20090420
  2. (K-DUR) POTASSIUM CHLORIDE [Concomitant]
  3. COUMADIN [Concomitant]
  4. CALTRATE [Concomitant]
  5. FUROSEMIDE [Concomitant]
  6. SYNTHROID [Concomitant]
  7. CARTIA (UNITED STATES) [Concomitant]
  8. FOSAMAX [Concomitant]
  9. CRESTOR [Concomitant]
  10. PRED FORTE [Concomitant]
     Dosage: 1DROP TWICE DAILY IN RIGHT EYE
     Route: 065
  11. ELESTAT [Concomitant]
     Dosage: 1 DROP TWICE DAILY IN BOTH EYES
     Route: 065
  12. TETRACAINE [Concomitant]
     Dosage: PRE-INJECTION
     Route: 065
  13. TOBREX [Concomitant]
     Dosage: PRE-INJECTION
     Route: 065
  14. BETADINE [Concomitant]
     Dosage: PRE-INJECTION
     Route: 065
  15. COZAAR [Concomitant]

REACTIONS (7)
  - Fall [Unknown]
  - Hip fracture [Unknown]
  - Cholecystectomy [Unknown]
  - Squamous cell carcinoma [Unknown]
  - Skin cancer [Unknown]
  - Visual acuity reduced [Unknown]
  - Retinal haemorrhage [Unknown]
